FAERS Safety Report 20483172 (Version 3)
Quarter: 2022Q1

REPORT INFORMATION
  Report Type: Spontaneous
  Country: JP (occurrence: JP)
  Receive Date: 20220217
  Receipt Date: 20220331
  Transmission Date: 20220423
  Serious: Yes (Life-Threatening, Hospitalization)
  Sender: FDA-Public Use
  Company Number: JP-ABBVIE-22K-087-4280967-00

PATIENT
  Age: 73 Year
  Sex: Female

DRUGS (8)
  1. GLECAPREVIR\PIBRENTASVIR [Suspect]
     Active Substance: GLECAPREVIR\PIBRENTASVIR
     Indication: Hepatic cirrhosis
     Route: 048
     Dates: start: 20220124, end: 20220215
  2. PITAVASTATIN CALCIUM [Concomitant]
     Active Substance: PITAVASTATIN CALCIUM
     Indication: Product used for unknown indication
     Route: 048
  3. ALFACALCIDOL [Concomitant]
     Active Substance: ALFACALCIDOL
     Indication: Product used for unknown indication
     Route: 048
  4. FUROSEMIDE [Concomitant]
     Active Substance: FUROSEMIDE
     Indication: Product used for unknown indication
     Route: 048
  5. NITRAZEPAM [Concomitant]
     Active Substance: NITRAZEPAM
     Indication: Product used for unknown indication
     Route: 048
  6. FERRIC SODIUM CITRATE [Concomitant]
     Active Substance: FERRIC SODIUM CITRATE
     Indication: Product used for unknown indication
     Dosage: SODIUM FERROUS CITRATE
     Route: 048
  7. CALCIUM CARBONATE [Concomitant]
     Active Substance: CALCIUM CARBONATE
     Indication: Product used for unknown indication
     Route: 048
  8. FEBUXOSTAT [Concomitant]
     Active Substance: FEBUXOSTAT
     Indication: Product used for unknown indication
     Route: 048

REACTIONS (4)
  - Hypercalcaemia [Recovering/Resolving]
  - Altered state of consciousness [Recovering/Resolving]
  - Hypophagia [Unknown]
  - Dehydration [Unknown]

NARRATIVE: CASE EVENT DATE: 20220101
